FAERS Safety Report 15545571 (Version 5)
Quarter: 2021Q1

REPORT INFORMATION
  Report Type: Other
  Country: IT (occurrence: IT)
  Receive Date: 20181024
  Receipt Date: 20210217
  Transmission Date: 20210419
  Serious: Yes (Other)
  Sender: FDA-Public Use
  Company Number: IT-ROCHE-2202364

PATIENT
  Age: 68 Year
  Sex: Male

DRUGS (1)
  1. OCRELIZUMAB. [Suspect]
     Active Substance: OCRELIZUMAB
     Indication: PRIMARY PROGRESSIVE MULTIPLE SCLEROSIS
     Route: 042
     Dates: start: 20180508, end: 20191128

REACTIONS (3)
  - Gout [Recovered/Resolved]
  - Peripheral artery occlusion [Not Recovered/Not Resolved]
  - Orchitis [Recovering/Resolving]

NARRATIVE: CASE EVENT DATE: 20180816
